FAERS Safety Report 15189509 (Version 2)
Quarter: 2018Q3

REPORT INFORMATION
  Report Type: Report from Study
  Country: ES (occurrence: ES)
  Receive Date: 20180724
  Receipt Date: 20180726
  Transmission Date: 20181010
  Serious: Yes (Death)
  Sender: FDA-Public Use
  Company Number: ES-PFIZER INC-2018295200

PATIENT
  Age: 69 Year
  Sex: Male

DRUGS (2)
  1. AMPHOTERICIN B LIPID COMPLEX [Suspect]
     Active Substance: AMPHOTERICIN B
     Indication: BLASTOMYCOSIS
     Dosage: 3 MG/KG, UNK (FOR DAYS)
  2. FLUCONAZOLE. [Suspect]
     Active Substance: FLUCONAZOLE
     Indication: BLASTOMYCOSIS
     Dosage: 800 MG, UNK

REACTIONS (1)
  - Drug ineffective [Fatal]
